FAERS Safety Report 23403313 (Version 2)
Quarter: 2024Q1

REPORT INFORMATION
  Report Type: Spontaneous
  Country: US (occurrence: US)
  Receive Date: 20240116
  Receipt Date: 20240206
  Transmission Date: 20240409
  Serious: No
  Sender: FDA-Public Use
  Company Number: US-UCBSA-2024000978

PATIENT
  Sex: Male

DRUGS (2)
  1. NAYZILAM [Suspect]
     Active Substance: MIDAZOLAM
     Indication: Seizure
     Dosage: 5MG/0.1ML
  2. NAYZILAM [Suspect]
     Active Substance: MIDAZOLAM
     Indication: Epilepsy

REACTIONS (3)
  - Device failure [Unknown]
  - Product dispensing issue [Unknown]
  - Therapy interrupted [Unknown]
